FAERS Safety Report 5310953-5 (Version None)
Quarter: 2007Q2

REPORT INFORMATION
  Report Type: 
  Country: None (occurrence: None)
  Receive Date: 20070426
  Receipt Date: 20070426
  Transmission Date: 20071010
  Serious: Yes (Other)
  Sender: FDA-Public Use
  Company Number: None

PATIENT
  Sex: Male

DRUGS (1)
  1. ZYVOX [Suspect]
     Indication: URINARY TRACT INFECTION
     Dosage: 600MG BID PO
     Route: 048

REACTIONS (2)
  - BLOOD PRESSURE ABNORMAL [None]
  - LABELLED DRUG-FOOD INTERACTION MEDICATION ERROR [None]
